FAERS Safety Report 7301110-1 (Version None)
Quarter: 2011Q1

REPORT INFORMATION
  Report Type: 
  Country: None (occurrence: None)
  Receive Date: 20110218
  Receipt Date: 20110208
  Transmission Date: 20110831
  Serious: Yes (Other)
  Sender: FDA-Public Use
  Company Number: US-PERRIGO-11US001131

PATIENT
  Sex: Female
  Weight: 63.492 kg

DRUGS (1)
  1. NICOTINE 2 MG MINT 344 [Suspect]
     Indication: SMOKING CESSATION THERAPY
     Dosage: 20 LOZENGES, DAILY
     Route: 002
     Dates: start: 20090201

REACTIONS (3)
  - INCORRECT DRUG ADMINISTRATION DURATION [None]
  - ABORTION SPONTANEOUS [None]
  - DRUG EXPOSURE DURING PREGNANCY [None]
